FAERS Safety Report 5442386-5 (Version None)
Quarter: 2007Q3

REPORT INFORMATION
  Report Type: 
  Country: None (occurrence: None)
  Receive Date: 20070829
  Receipt Date: 20070820
  Transmission Date: 20080115
  Serious: Yes (Hospitalization, Other)
  Sender: FDA-Public Use
  Company Number: 2006BI010875

PATIENT
  Age: 48 Year
  Sex: Female

DRUGS (1)
  1. AVONEX [Suspect]
     Indication: MULTIPLE SCLEROSIS
     Dosage: 30 UG;QW;IM
     Route: 030
     Dates: start: 20041106

REACTIONS (5)
  - CARDIAC FAILURE CONGESTIVE [None]
  - FOREIGN BODY TRAUMA [None]
  - IATROGENIC INJURY [None]
  - PNEUMONIA [None]
  - SMALL INTESTINAL OBSTRUCTION [None]
